FAERS Safety Report 8066186-5 (Version None)
Quarter: 2012Q1

REPORT INFORMATION
  Report Type: 
  Country: None (occurrence: None)
  Receive Date: 20120117
  Receipt Date: 20120109
  Transmission Date: 20120608
  Serious: Yes (Disabling)
  Sender: FDA-Public Use
  Company Number: TIF2011A00143

PATIENT
  Age: 80 Year
  Sex: Male

DRUGS (9)
  1. ACTOS [Suspect]
     Indication: DIABETES MELLITUS
     Dosage: 15 MG (15 MG) ORAL
     Route: 048
     Dates: start: 20060512, end: 20090630
  2. METFORMINA (METFORMIN) [Concomitant]
  3. CARDIOASPIRINA (ACETYLSALICYLIC ACID) [Concomitant]
  4. VALSARTAN [Concomitant]
  5. SIMVASTATIN [Concomitant]
  6. ESKIM (OMEGA-3 TRIGLYCERIDES) [Concomitant]
  7. SINGULAIR [Concomitant]
  8. PANTORC (PANTOPRAZOLE SODIUM) [Concomitant]
  9. MINITRAN [Concomitant]

REACTIONS (1)
  - BLADDER CANCER [None]
